FAERS Safety Report 5712071-0 (Version None)
Quarter: 2008Q2

REPORT INFORMATION
  Report Type: 
  Country: None (occurrence: None)
  Receive Date: 20080418
  Receipt Date: 20080403
  Transmission Date: 20081010
  Serious: Yes (Other)
  Sender: FDA-Public Use
  Company Number: DSA_31058_2007

PATIENT
  Sex: Female

DRUGS (27)
  1. CARDIZEM [Suspect]
     Indication: HYPERTENSION
     Dosage: DF
  2. CARDIZEM CD [Suspect]
     Indication: HYPERTENSION
     Dosage: 180 MG QD ORAL
     Route: 048
     Dates: start: 19830101
  3. ATENOL [Concomitant]
  4. HYDROCHLOROTHIAZIDE [Concomitant]
  5. XANAX [Concomitant]
  6. PAXIL [Concomitant]
  7. TRAZODONE HCL [Concomitant]
  8. AMBIEN [Concomitant]
  9. LORCET /006007101 [Concomitant]
  10. PENICILLIN VK /00001802/ [Concomitant]
  11. ACETASOL HC [Concomitant]
  12. ALUMINUM CL SOL [Concomitant]
  13. ZOVIAX /00587301/ [Concomitant]
  14. COTRIMOXAZOLE [Concomitant]
  15. TERCONAZOLE [Concomitant]
  16. METRONIDAZOLE [Concomitant]
  17. PRAVACHOL [Concomitant]
  18. LUNESTA [Concomitant]
  19. ACETAMINOPHEN AND HYDROCODONE BITARTRATE [Concomitant]
  20. PRAVASTATIN [Concomitant]
  21. LEXAPRO [Concomitant]
  22. BUPROPION HCL [Concomitant]
  23. DRYSOL /00922701/ [Concomitant]
  24. CLARINEX /01398501/ [Concomitant]
  25. HYDROQUINONE [Concomitant]
  26. BUPROPION HCL [Concomitant]
  27. TENORMIN [Concomitant]

REACTIONS (31)
  - ABDOMINAL PAIN LOWER [None]
  - ANAEMIA [None]
  - BLOOD CHOLESTEROL INCREASED [None]
  - BLOOD TRIGLYCERIDES INCREASED [None]
  - CARDIOMEGALY [None]
  - CAROTID BRUIT [None]
  - CARPAL TUNNEL SYNDROME [None]
  - CHEST PAIN [None]
  - CONSTIPATION [None]
  - CONVULSION [None]
  - DYSPEPSIA [None]
  - ELECTROCARDIOGRAM T WAVE ABNORMAL [None]
  - FATIGUE [None]
  - FUNGAL INFECTION [None]
  - GENERAL PHYSICAL HEALTH DETERIORATION [None]
  - GINGIVAL BLEEDING [None]
  - GINGIVAL HYPERTROPHY [None]
  - GINGIVAL PAIN [None]
  - GINGIVAL SWELLING [None]
  - HERPES SIMPLEX [None]
  - INSOMNIA [None]
  - MENORRHAGIA [None]
  - NERVOUSNESS [None]
  - OCULAR ICTERUS [None]
  - PAIN IN EXTREMITY [None]
  - PALPITATIONS [None]
  - PERIODONTITIS [None]
  - RESPIRATORY DISORDER [None]
  - SLEEP DISORDER [None]
  - URINE OUTPUT INCREASED [None]
  - UTERINE LEIOMYOMA [None]
